FAERS Safety Report 12209907 (Version 1)
Quarter: 2016Q1

REPORT INFORMATION
  Report Type: Spontaneous
  Country: US (occurrence: US)
  Receive Date: 20160325
  Receipt Date: 20160325
  Transmission Date: 20160526
  Serious: Yes (Hospitalization)
  Sender: FDA-Public Use
  Company Number: US-ROCHE-1702162

PATIENT
  Age: 47 Year
  Sex: Female

DRUGS (29)
  1. LAMICTAL [Concomitant]
     Active Substance: LAMOTRIGINE
     Indication: DEPRESSION
     Route: 048
  2. ATORVASTATIN [Concomitant]
     Active Substance: ATORVASTATIN
     Indication: BLOOD CHOLESTEROL INCREASED
     Route: 065
  3. FUROSEMIDE. [Concomitant]
     Active Substance: FUROSEMIDE
     Route: 048
  4. LEVOTHYROXINE. [Concomitant]
     Active Substance: LEVOTHYROXINE
     Indication: HYPOTHYROIDISM
     Route: 048
  5. CLONAZEPAM. [Suspect]
     Active Substance: CLONAZEPAM
     Indication: ANXIETY
     Dosage: 1-2 TABLEST AS NEEDED
     Route: 065
  6. LIPITOR [Concomitant]
     Active Substance: ATORVASTATIN CALCIUM
     Indication: BLOOD CHOLESTEROL INCREASED
  7. COREG CR [Concomitant]
     Active Substance: CARVEDILOL PHOSPHATE
     Route: 048
  8. FENOFIBRATE. [Concomitant]
     Active Substance: FENOFIBRATE
     Indication: BLOOD CHOLESTEROL INCREASED
     Route: 048
  9. NYSTOP [Concomitant]
     Active Substance: NYSTATIN
     Indication: FUNGAL INFECTION
  10. DICLOFENAC SODIUM. [Concomitant]
     Active Substance: DICLOFENAC SODIUM
     Indication: ARTHRALGIA
  11. SYNTHROID [Concomitant]
     Active Substance: LEVOTHYROXINE SODIUM
  12. ACTEMRA [Suspect]
     Active Substance: TOCILIZUMAB
     Route: 058
     Dates: start: 201601
  13. ASPIRIN. [Concomitant]
     Active Substance: ASPIRIN
     Route: 065
  14. BETHANECHOL [Concomitant]
     Active Substance: BETHANECHOL
     Indication: BLADDER DISORDER
     Route: 048
  15. HYDROXYZINE [Concomitant]
     Active Substance: HYDROXYZINE\HYDROXYZINE HYDROCHLORIDE
     Route: 048
  16. PROTONIX (UNITED STATES) [Concomitant]
     Indication: GASTRIC ULCER
     Route: 048
  17. DOCUSATE SODIUM. [Concomitant]
     Active Substance: DOCUSATE SODIUM
     Route: 048
  18. VERAPAMIL [Concomitant]
     Active Substance: VERAPAMIL HYDROCHLORIDE
     Route: 065
  19. BACTRIM [Suspect]
     Active Substance: SULFAMETHOXAZOLE\TRIMETHOPRIM
     Indication: PRODUCT USED FOR UNKNOWN INDICATION
     Route: 065
  20. COREG CR [Concomitant]
     Active Substance: CARVEDILOL PHOSPHATE
     Indication: HEART DISEASE CONGENITAL
     Route: 048
  21. OXYCODONE [Concomitant]
     Active Substance: OXYCODONE
     Indication: PELVIC PAIN
     Route: 048
  22. CYCLOBENZAPRINE [Concomitant]
     Active Substance: CYCLOBENZAPRINE
     Route: 048
  23. ACTEMRA [Suspect]
     Active Substance: TOCILIZUMAB
     Indication: RHEUMATOID ARTHRITIS
     Route: 058
     Dates: start: 20151222
  24. LYRICA [Concomitant]
     Active Substance: PREGABALIN
     Indication: RHEUMATOID ARTHRITIS
     Route: 048
  25. NYSTOP [Concomitant]
     Active Substance: NYSTATIN
     Indication: RASH
  26. OXYCONTIN [Concomitant]
     Active Substance: OXYCODONE HYDROCHLORIDE
     Indication: PELVIC PAIN
     Route: 048
  27. DICLOFENAC SODIUM. [Concomitant]
     Active Substance: DICLOFENAC SODIUM
     Indication: BLADDER SPASM
     Route: 048
  28. LIDOCAINE. [Concomitant]
     Active Substance: LIDOCAINE
     Route: 065
  29. MUPIROCIN CREAM [Concomitant]
     Active Substance: MUPIROCIN
     Route: 065

REACTIONS (10)
  - Drug dose omission [Unknown]
  - Decreased appetite [Not Recovered/Not Resolved]
  - Abdominal pain [Recovered/Resolved]
  - Muscle spasms [Recovered/Resolved]
  - Liquid product physical issue [Not Recovered/Not Resolved]
  - Device issue [Recovered/Resolved]
  - Pain [Unknown]
  - Chest pain [Recovered/Resolved]
  - Hypersomnia [Not Recovered/Not Resolved]
  - Drug hypersensitivity [Unknown]

NARRATIVE: CASE EVENT DATE: 20160123
